FAERS Safety Report 9413442 (Version 1)
Quarter: 2013Q3

REPORT INFORMATION
  Report Type: Report from Study
  Country: US (occurrence: US)
  Receive Date: 20130722
  Receipt Date: 20130722
  Transmission Date: 20140515
  Serious: Yes (Life-Threatening, Hospitalization)
  Sender: FDA-Public Use
  Company Number: US-MPIJNJ-2013-04822

PATIENT
  Sex: Female
  Weight: 6.3 kg

DRUGS (4)
  1. VELCADE [Suspect]
     Indication: ACUTE MYELOID LEUKAEMIA
     Dosage: 1.3 MG/M2, UNK
     Route: 042
     Dates: end: 20130607
  2. CYTARABINE [Suspect]
     Indication: ACUTE MYELOID LEUKAEMIA
     Dosage: 20 MG, UNK
     Route: 037
     Dates: end: 20130603
  3. CYTARABINE [Suspect]
     Dosage: UNK
     Route: 042
  4. MITOXANTRONE HYDROCHLORIDE [Suspect]
     Indication: ACUTE MYELOID LEUKAEMIA
     Dosage: 0.4 MG/KG, UNK
     Route: 042
     Dates: end: 20130605

REACTIONS (2)
  - Pulmonary hypertension [Recovered/Resolved]
  - Sepsis [Not Recovered/Not Resolved]
